FAERS Safety Report 20559445 (Version 1)
Quarter: 2022Q1

REPORT INFORMATION
  Report Type: Spontaneous
  Country: CN (occurrence: CN)
  Receive Date: 20220307
  Receipt Date: 20220307
  Transmission Date: 20220423
  Serious: Yes (Other)
  Sender: FDA-Public Use
  Company Number: CN-ABBVIE-22K-035-4300295-00

PATIENT
  Age: 60 Year
  Sex: Female
  Weight: 63 kg

DRUGS (2)
  1. VALPROATE SODIUM [Suspect]
     Active Substance: VALPROATE SODIUM
     Indication: Seizure prophylaxis
     Route: 048
     Dates: start: 20190822, end: 20190912
  2. OXIRACETAM [Concomitant]
     Active Substance: OXIRACETAM
     Indication: Nervous system disorder
     Dates: start: 20190826, end: 20190912

REACTIONS (1)
  - Hepatic function abnormal [Unknown]

NARRATIVE: CASE EVENT DATE: 20190923
